FAERS Safety Report 11368512 (Version 3)
Quarter: 2016Q2

REPORT INFORMATION
  Report Type: Report from Study
  Country: CA (occurrence: CA)
  Receive Date: 20150812
  Receipt Date: 20160601
  Transmission Date: 20160815
  Serious: Yes (Hospitalization, Other)
  Sender: FDA-Public Use
  Company Number: CA-AMGEN-CANSL2015080512

PATIENT
  Age: 70 Year
  Sex: Male

DRUGS (9)
  1. AMLODIPINE BESYLATE. [Concomitant]
     Active Substance: AMLODIPINE BESYLATE
     Indication: BLOOD PRESSURE MEASUREMENT
  2. METOPROLOL. [Concomitant]
     Active Substance: METOPROLOL
     Indication: MYOCARDIAL INFARCTION
  3. CALCIUM [Concomitant]
     Active Substance: CALCIUM
     Indication: RENAL ABSCESS
  4. ATORVASTATIN [Concomitant]
     Active Substance: ATORVASTATIN
     Dosage: UNK UNK, QD IN EVENING
  5. ENBREL [Suspect]
     Active Substance: ETANERCEPT
     Indication: RHEUMATOID ARTHRITIS
     Dosage: 50 MG, UNK
     Route: 065
     Dates: start: 20120604
  6. TOLPERISONE                        /00293002/ [Concomitant]
  7. SODIUM BICARBONATE. [Concomitant]
     Active Substance: SODIUM BICARBONATE
  8. HUMALOG [Concomitant]
     Active Substance: INSULIN LISPRO
  9. LANTUS [Concomitant]
     Active Substance: INSULIN GLARGINE

REACTIONS (6)
  - Renal impairment [Not Recovered/Not Resolved]
  - Myocardial infarction [Unknown]
  - Sjogren^s syndrome [Unknown]
  - Visual impairment [Unknown]
  - Dry eye [Unknown]
  - Photophobia [Unknown]

NARRATIVE: CASE EVENT DATE: 2012
